FAERS Safety Report 7362151-1 (Version None)
Quarter: 2011Q1

REPORT INFORMATION
  Report Type: 
  Country: None (occurrence: None)
  Receive Date: 20110318
  Receipt Date: 20110308
  Transmission Date: 20110831
  Serious: Yes (Hospitalization, Other)
  Sender: FDA-Public Use
  Company Number: US-JNJFOC-20081007388

PATIENT
  Sex: Female
  Weight: 51.7 kg

DRUGS (6)
  1. REMICADE [Suspect]
     Dosage: TOTAL 5  DOSES
     Route: 042
  2. METRONIDAZOLE [Concomitant]
  3. REMICADE [Suspect]
     Route: 042
  4. PREDNISONE [Concomitant]
  5. MESALAMINE [Concomitant]
     Route: 048
  6. REMICADE [Suspect]
     Indication: CROHN'S DISEASE
     Route: 042

REACTIONS (1)
  - CROHN'S DISEASE [None]
